FAERS Safety Report 5515116-6 (Version None)
Quarter: 2007Q4

REPORT INFORMATION
  Report Type: 
  Country: None (occurrence: None)
  Receive Date: 20071113
  Receipt Date: 20070109
  Transmission Date: 20080405
  Serious: No
  Sender: FDA-Public Use
  Company Number: A0634939A

PATIENT
  Age: 84 Year
  Sex: Female

DRUGS (4)
  1. COREG [Suspect]
     Dosage: 12.5MG TWICE PER DAY
     Route: 048
  2. FOSAMAX [Concomitant]
  3. M.V.I. [Concomitant]
  4. SYNTHROID [Concomitant]

REACTIONS (1)
  - DIZZINESS [None]
